FAERS Safety Report 5079204-3 (Version None)
Quarter: 2006Q3

REPORT INFORMATION
  Report Type: 
  Country: None (occurrence: None)
  Receive Date: 20060808
  Receipt Date: 20060802
  Transmission Date: 20061208
  Serious: Yes (Hospitalization)
  Sender: FDA-Public Use
  Company Number: 2006-01980

PATIENT
  Age: 63 Year
  Sex: Male
  Weight: 75.5 kg

DRUGS (7)
  1. VELCADE [Suspect]
     Indication: DIFFUSE LARGE B-CELL LYMPHOMA
     Dosage: 1.50 MG/M2, IV BOLUS
     Route: 040
     Dates: start: 20060505, end: 20060710
  2. CYCLOPHOSPHAMIDE [Suspect]
     Indication: DIFFUSE LARGE B-CELL LYMPHOMA
     Dosage: 750.00 MG/M2, INTRAVENOUS
     Route: 042
     Dates: start: 20060505, end: 20060711
  3. DOXORUBICIN HCL [Suspect]
     Indication: DIFFUSE LARGE B-CELL LYMPHOMA
     Dosage: 10.00 MG/M2, INTRAVENOUS
     Route: 042
     Dates: start: 20060505, end: 20060710
  4. ETOPOSIDE [Suspect]
     Indication: DIFFUSE LARGE B-CELL LYMPHOMA
     Dosage: 50.00 MG/M2, INTRAVENOUS
     Route: 042
     Dates: start: 20060505, end: 20060710
  5. NEUPOGEN [Suspect]
     Indication: DIFFUSE LARGE B-CELL LYMPHOMA
     Dosage: 300.00 UG, SUBCUTANEOUS
     Route: 058
     Dates: start: 20060505, end: 20060721
  6. PREDNISONE [Suspect]
     Indication: DIFFUSE LARGE B-CELL LYMPHOMA
     Dosage: 60.00 MG/M2, ORAL
     Route: 048
     Dates: start: 20060505, end: 20060711
  7. VINCRISTINE [Suspect]
     Indication: DIFFUSE LARGE B-CELL LYMPHOMA
     Dosage: 0.40 MG/M2, INTRAVENOUS
     Route: 042
     Dates: start: 20060505, end: 20060710

REACTIONS (3)
  - AUTONOMIC NEUROPATHY [None]
  - ORTHOSTATIC HYPOTENSION [None]
  - SYNCOPE [None]
